FAERS Safety Report 10378103 (Version 1)
Quarter: 2014Q1

REPORT INFORMATION
  Report Type: Spontaneous
  Country: US (occurrence: None)
  Receive Date: 20140306
  Receipt Date: 20140306
  Transmission Date: 20141002
  Serious: Yes (Hospitalization)
  Sender: FDA-Public Use
  Company Number: 163-21880-13013058

PATIENT
  Sex: Male
  Weight: 106.6 kg

DRUGS (9)
  1. REVLIMID (LENALIDOMIDE) (25 MILLIGRAM, CAPSULES) [Suspect]
     Indication: PLASMA CELL MYELOMA
     Route: 048
     Dates: start: 201105
  2. AMIODARONE HCL [Concomitant]
  3. ASPIRIN [Concomitant]
  4. CALCIUM CITRATE [Concomitant]
  5. POTASSIUM CHLORIDE [Concomitant]
  6. PRAVASTATIN SODIUM [Concomitant]
  7. TOPROL XL [Concomitant]
  8. WARFARIN SODIUM [Concomitant]
  9. ZOMETA (ZOLEDRONIC ACID) [Concomitant]

REACTIONS (1)
  - Pneumonia [None]
